FAERS Safety Report 9688387 (Version 2)
Quarter: 2016Q3

REPORT INFORMATION
  Report Type: Spontaneous
  Country: US (occurrence: US)
  Receive Date: 20131114
  Receipt Date: 20160929
  Transmission Date: 20161109
  Serious: Yes (Hospitalization, Other)
  Sender: FDA-Public Use
  Company Number: US-SA-2013SA115710

PATIENT
  Age: 40 Year
  Sex: Female
  Weight: 105 kg

DRUGS (1)
  1. FABRAZYME [Suspect]
     Active Substance: AGALSIDASE BETA
     Indication: FABRY^S DISEASE
     Route: 042

REACTIONS (2)
  - Systemic lupus erythematosus [Not Recovered/Not Resolved]
  - Meniscus injury [Not Recovered/Not Resolved]
